FAERS Safety Report 4613682-6 (Version None)
Quarter: 2005Q1

REPORT INFORMATION
  Report Type: 
  Country: None (occurrence: None)
  Receive Date: 20050321
  Receipt Date: 20050315
  Transmission Date: 20050727
  Serious: Yes (Hospitalization, Other)
  Sender: FDA-Public Use
  Company Number: 200512073US

PATIENT
  Sex: Male
  Weight: 130 kg

DRUGS (3)
  1. INSULIN GLARGINE [Suspect]
     Dates: start: 20030121
  2. INSULIN ASPART [Suspect]
     Dates: start: 20030304
  3. METFORMIN HCL [Suspect]
     Dates: start: 20020816

REACTIONS (5)
  - ANAEMIA [None]
  - BLOOD CREATININE INCREASED [None]
  - BLOOD UREA INCREASED [None]
  - BRAIN NATRIURETIC PEPTIDE INCREASED [None]
  - DIZZINESS [None]
